FAERS Safety Report 9345854 (Version 1)
Quarter: 2013Q2

REPORT INFORMATION
  Report Type: Spontaneous
  Country: FI (occurrence: FI)
  Receive Date: 20130613
  Receipt Date: 20130613
  Transmission Date: 20140414
  Serious: Yes (Hospitalization)
  Sender: FDA-Public Use
  Company Number: FI-JNJFOC-20130601070

PATIENT
  Age: 59 Year
  Sex: Male

DRUGS (8)
  1. REMICADE [Suspect]
     Indication: RHEUMATOID ARTHRITIS
     Route: 042
     Dates: start: 20130110
  2. REMICADE [Suspect]
     Indication: RHEUMATOID ARTHRITIS
     Route: 042
     Dates: start: 201205
  3. CALCICHEW-D3 [Concomitant]
     Dosage: 2*1
     Route: 048
  4. MAREVAN [Concomitant]
     Indication: PULMONARY EMBOLISM
     Dosage: ACCORDING TO INR VALUE
     Route: 048
  5. COZAAR COMP [Concomitant]
     Indication: HYPERTENSION
     Dosage: FREQUENCY 1*1
     Route: 048
  6. SIMVASTATIN [Concomitant]
     Indication: BLOOD CHOLESTEROL INCREASED
     Route: 048
  7. OMEPRAZOLE [Concomitant]
     Indication: GASTROINTESTINAL DISORDER THERAPY
     Route: 048
  8. CARVEDILOL [Concomitant]
     Indication: HYPERTENSION
     Dosage: 1*1
     Route: 048

REACTIONS (6)
  - Muscular weakness [Recovering/Resolving]
  - Spinal osteoarthritis [Unknown]
  - Muscle atrophy [Unknown]
  - Benign neoplasm of thyroid gland [Unknown]
  - Headache [Unknown]
  - Rheumatoid arthritis [Unknown]
